FAERS Safety Report 6190441-7 (Version None)
Quarter: 2009Q2

REPORT INFORMATION
  Report Type: 
  Country: None (occurrence: None)
  Receive Date: 20090514
  Receipt Date: 20090512
  Transmission Date: 20091009
  Serious: Yes (Hospitalization)
  Sender: FDA-Public Use
  Company Number: AU-BRISTOL-MYERS SQUIBB COMPANY-14620421

PATIENT
  Age: 36 Year
  Sex: Female
  Weight: 49 kg

DRUGS (6)
  1. AMIKACIN SULFATE [Suspect]
     Dosage: INJECTION
     Route: 042
     Dates: start: 20070614, end: 20070622
  2. CLARITHROMYCIN [Concomitant]
  3. CORTATE [Concomitant]
     Indication: ADRENAL INSUFFICIENCY
  4. ETHAMBUTOL HCL [Concomitant]
  5. FLORINEF [Concomitant]
     Indication: ADRENAL INSUFFICIENCY
  6. ZINNAT [Concomitant]
     Indication: COLLAPSE OF LUNG

REACTIONS (8)
  - DIARRHOEA [None]
  - NAUSEA [None]
  - OROPHARYNGEAL CANDIDIASIS [None]
  - RASH MACULO-PAPULAR [None]
  - TINNITUS [None]
  - TYMPANIC MEMBRANE PERFORATION [None]
  - VERTIGO [None]
  - VOMITING [None]
